FAERS Safety Report 13117048 (Version 3)
Quarter: 2017Q1

REPORT INFORMATION
  Report Type: Spontaneous
  Country: MY (occurrence: MY)
  Receive Date: 20170116
  Receipt Date: 20170323
  Transmission Date: 20170428
  Serious: Yes (Hospitalization, Other)
  Sender: FDA-Public Use
  Company Number: PHHY2017MY005266

PATIENT
  Age: 11 Year
  Sex: Male

DRUGS (2)
  1. EXJADE [Suspect]
     Active Substance: DEFERASIROX
     Indication: THALASSAEMIA BETA
     Dosage: 25 MG/KG (625 MG), QD
     Route: 065
     Dates: start: 201308
  2. EXJADE [Suspect]
     Active Substance: DEFERASIROX
     Dosage: 36 MG/KG, QD (875 MG)
     Route: 065
     Dates: start: 201702

REACTIONS (16)
  - Haemoglobin decreased [Unknown]
  - Platelet count increased [Unknown]
  - Abdominal pain [Recovering/Resolving]
  - Hepatic cyst [Unknown]
  - Blood albumin decreased [Unknown]
  - Musculoskeletal chest pain [Unknown]
  - Aspartate aminotransferase increased [Unknown]
  - Neutrophil count increased [Unknown]
  - Protein total increased [Unknown]
  - White blood cell count increased [Unknown]
  - Lymphocyte count decreased [Unknown]
  - Blood alkaline phosphatase increased [Unknown]
  - Serum ferritin increased [Unknown]
  - Liver abscess [Recovering/Resolving]
  - Pyrexia [Recovering/Resolving]
  - Alanine aminotransferase increased [Unknown]

NARRATIVE: CASE EVENT DATE: 201603
